FAERS Safety Report 24287603 (Version 3)
Quarter: 2025Q1

REPORT INFORMATION
  Report Type: Report from Study
  Country: US (occurrence: US)
  Receive Date: 20240905
  Receipt Date: 20250123
  Transmission Date: 20250409
  Serious: Yes (Hospitalization)
  Sender: PFIZER
  Company Number: US-PFIZER INC-PV202400116110

PATIENT
  Age: 62 Year
  Sex: Male

DRUGS (1)
  1. INLYTA [Suspect]
     Active Substance: AXITINIB
     Indication: Renal cell carcinoma
     Dosage: DOSING- 5 MG TAKE 1 TABLET BY MOUTH DAILY
     Route: 048
     Dates: start: 20240625, end: 20240913

REACTIONS (5)
  - Thrombosis [Unknown]
  - Blood calcium increased [Unknown]
  - Haemoglobin decreased [Unknown]
  - Off label use [Unknown]
  - Blood pressure abnormal [Unknown]

NARRATIVE: CASE EVENT DATE: 20240101
